FAERS Safety Report 9714261 (Version 2)
Quarter: 2013Q4

REPORT INFORMATION
  Report Type: Spontaneous
  Country: US (occurrence: US)
  Receive Date: 20131126
  Receipt Date: 20131126
  Transmission Date: 20140711
  Serious: No
  Sender: FDA-Public Use
  Company Number: US-GILEAD-2008-0018678

PATIENT
  Age: 52 Year
  Sex: Female
  Weight: 90.72 kg

DRUGS (18)
  1. LETAIRIS [Suspect]
     Indication: PULMONARY HYPERTENSION
     Route: 048
     Dates: start: 20080501, end: 20081118
  2. SINGULAIR [Concomitant]
     Indication: HYPERSENSITIVITY
  3. LASIX [Concomitant]
  4. NASACORT AQ [Concomitant]
     Indication: RHINITIS ALLERGIC
  5. LORATADINE [Concomitant]
     Indication: HYPERSENSITIVITY
  6. TRIAMCINOLONE [Concomitant]
  7. FLURAZEPAM [Concomitant]
  8. BACLOFEN [Concomitant]
  9. METROGEL [Concomitant]
  10. TIMOLOL [Concomitant]
  11. ENBREL [Concomitant]
     Indication: ANKYLOSING SPONDYLITIS
  12. PREVACID [Concomitant]
     Indication: GASTROOESOPHAGEAL REFLUX DISEASE
  13. TRAMADOL [Concomitant]
     Indication: PAIN
  14. PLAQUENIL [Concomitant]
  15. TRI-LUMA CREAM [Concomitant]
  16. COLACE [Concomitant]
     Indication: CONSTIPATION
  17. DULCOLAX [Concomitant]
  18. FISH OIL [Concomitant]

REACTIONS (2)
  - Hepatic enzyme increased [Not Recovered/Not Resolved]
  - Thinking abnormal [Recovered/Resolved]
